FAERS Safety Report 11059184 (Version 1)
Quarter: 2015Q2

REPORT INFORMATION
  Report Type: Spontaneous
  Country: US (occurrence: None)
  Receive Date: 20150420
  Receipt Date: 20150420
  Transmission Date: 20150821
  Serious: No
  Sender: FDA-Public Use
  Company Number: AEGR001215

PATIENT
  Age: 54 Year
  Sex: Female
  Weight: 63 kg

DRUGS (1)
  1. JUXTAPID [Suspect]
     Active Substance: LOMITAPIDE MESYLATE
     Indication: TYPE IIA HYPERLIPIDAEMIA
     Route: 048
     Dates: start: 20140421, end: 2014

REACTIONS (4)
  - Decreased appetite [None]
  - Gastrooesophageal reflux disease [None]
  - Nausea [None]
  - Abdominal distension [None]
